FAERS Safety Report 14781270 (Version 2)
Quarter: 2018Q2

REPORT INFORMATION
  Report Type: Report from Study
  Country: None (occurrence: US)
  Receive Date: 20180419
  Receipt Date: 20180424
  Transmission Date: 20180711
  Serious: Yes (Hospitalization, Other)
  Sender: FDA-Public Use
  Company Number: US-ABBVIE-18K-163-2325640-00

PATIENT
  Age: 25 Year
  Sex: Male
  Weight: 70.37 kg

DRUGS (3)
  1. FLAGYL [Suspect]
     Active Substance: METRONIDAZOLE\METRONIDAZOLE HYDROCHLORIDE
     Indication: FISTULA
     Route: 065
     Dates: start: 201802
  2. CIPROFLOXACIN. [Suspect]
     Active Substance: CIPROFLOXACIN
     Indication: FISTULA
     Route: 065
     Dates: start: 201802
  3. HUMIRA [Suspect]
     Active Substance: ADALIMUMAB
     Indication: CROHN^S DISEASE
     Route: 058
     Dates: start: 2012, end: 201710

REACTIONS (11)
  - Colonic fistula [Recovered/Resolved]
  - Pelvic infection [Recovered/Resolved]
  - Stoma site extravasation [Recovered/Resolved]
  - Large intestine perforation [Recovered/Resolved]
  - Gastrointestinal stoma complication [Unknown]
  - Large intestinal stenosis [Recovered/Resolved]
  - Stoma complication [Recovered/Resolved]
  - Gastrointestinal infection [Unknown]
  - Abdominal pain [Recovered/Resolved]
  - Secretion discharge [Unknown]
  - Stoma site haemorrhage [Recovered/Resolved]

NARRATIVE: CASE EVENT DATE: 2017
